APPROVED DRUG PRODUCT: NYDRAZID
Active Ingredient: ISONIAZID
Strength: 100MG
Dosage Form/Route: TABLET;ORAL
Application: N008392 | Product #003
Applicant: BRISTOL MYERS SQUIBB CO
Approved: Approved Prior to Jan 1, 1982 | RLD: No | RS: No | Type: DISCN